FAERS Safety Report 17603596 (Version 1)
Quarter: 2020Q1

REPORT INFORMATION
  Report Type: Spontaneous
  Country: US (occurrence: US)
  Receive Date: 20200331
  Receipt Date: 20200331
  Transmission Date: 20200409
  Serious: No
  Sender: FDA-Public Use
  Company Number: US-ASTRAZENECA-2020SE36553

PATIENT
  Age: 27992 Day
  Sex: Female
  Weight: 80.7 kg

DRUGS (1)
  1. BEVESPI AEROSPHERE [Suspect]
     Active Substance: FORMOTEROL FUMARATE\GLYCOPYRROLATE
     Indication: BRONCHITIS CHRONIC
     Dosage: 2 PUFFS, TWO TIMES A DAY
     Route: 055
     Dates: start: 20200302

REACTIONS (3)
  - Dyspnoea [Unknown]
  - Device ineffective [Unknown]
  - Intentional device misuse [Unknown]

NARRATIVE: CASE EVENT DATE: 20200302
